FAERS Safety Report 6433392-2 (Version None)
Quarter: 2009Q4

REPORT INFORMATION
  Report Type: 
  Country: None (occurrence: None)
  Receive Date: 20091106
  Receipt Date: 20091106
  Transmission Date: 20100525
  Serious: No
  Sender: FDA-Public Use
  Company Number: None

PATIENT
  Age: 80 Year
  Sex: Male
  Weight: 92.9874 kg

DRUGS (2)
  1. LEVAQUIN [Suspect]
     Indication: COUGH
     Dosage: ONE TABLET ONE PER DAY PO
     Route: 048
     Dates: start: 20090910, end: 20090914
  2. LEVAQUIN [Suspect]
     Indication: DYSPHONIA
     Dosage: ONE TABLET ONE PER DAY PO
     Route: 048
     Dates: start: 20090910, end: 20090914

REACTIONS (2)
  - TENDON RUPTURE [None]
  - WALKING AID USER [None]
